FAERS Safety Report 24229176 (Version 1)
Quarter: 2024Q3

REPORT INFORMATION
  Report Type: Spontaneous
  Country: US (occurrence: None)
  Receive Date: 20240819
  Receipt Date: 20240819
  Transmission Date: 20241016
  Serious: No
  Sender: Public
  Company Number: None

PATIENT
  Age: 33 Year
  Sex: Female
  Weight: 105.75 kg

DRUGS (1)
  1. ZEPBOUND [Suspect]
     Active Substance: TIRZEPATIDE
     Indication: Weight decreased
     Dosage: 1 INJECTION WEEKLY SUBCUTANEOUS
     Route: 058
     Dates: start: 20240704

REACTIONS (5)
  - Depression [None]
  - Fatigue [None]
  - Anhedonia [None]
  - Depressed mood [None]
  - Therapy change [None]

NARRATIVE: CASE EVENT DATE: 20240819
